FAERS Safety Report 9765856 (Version 1)
Quarter: 2013Q4

REPORT INFORMATION
  Report Type: Spontaneous
  Country: US (occurrence: US)
  Receive Date: 20131217
  Receipt Date: 20131217
  Transmission Date: 20140711
  Serious: No
  Sender: FDA-Public Use
  Company Number: US-BIOGENIDEC-2013BI116004

PATIENT
  Age: 44 Year
  Sex: Female

DRUGS (13)
  1. TECFIDERA [Suspect]
     Indication: MULTIPLE SCLEROSIS
     Route: 048
     Dates: start: 201311
  2. PANTOPRAZOLE SOD DR [Concomitant]
  3. LOSARTAN POTASSIUM [Concomitant]
  4. LACTULOSE [Concomitant]
  5. NORVASC [Concomitant]
  6. METROPOLOL TARTRATE [Concomitant]
  7. METOCLOPRAMIDE [Concomitant]
  8. VALIUM [Concomitant]
  9. CLONIDINE HCL [Concomitant]
  10. OXYCONTIN [Concomitant]
  11. FLEXERIL [Concomitant]
  12. PROAIR HFA [Concomitant]
  13. REGLAN [Concomitant]

REACTIONS (4)
  - Headache [Unknown]
  - Asthenia [Unknown]
  - Sluggishness [Unknown]
  - Flushing [Unknown]
